FAERS Safety Report 6532218-6 (Version None)
Quarter: 2010Q1

REPORT INFORMATION
  Report Type: 
  Country: None (occurrence: None)
  Receive Date: 20100108
  Receipt Date: 20091229
  Transmission Date: 20100710
  Serious: Yes (Death)
  Sender: FDA-Public Use
  Company Number: IL-ROCHE-676843

PATIENT
  Age: 62 Year
  Sex: Male

DRUGS (2)
  1. CELLCEPT [Suspect]
     Indication: INTERSTITIAL LUNG DISEASE
     Dosage: DOSE: 1 GRAMX2.
     Route: 048
     Dates: start: 20070101
  2. INSULIN HUMAN [Concomitant]

REACTIONS (1)
  - VENTRICULAR ARRHYTHMIA [None]
